FAERS Safety Report 7127514-8 (Version None)
Quarter: 2010Q4

REPORT INFORMATION
  Report Type: 
  Country: None (occurrence: None)
  Receive Date: 20101129
  Receipt Date: 20100728
  Transmission Date: 20110411
  Serious: Yes (Hospitalization, Other)
  Sender: FDA-Public Use
  Company Number: US-PFIZER INC-2010095469

PATIENT

DRUGS (1)
  1. REVATIO [Suspect]
     Dosage: 10 MG, 1X/DAY

REACTIONS (1)
  - DYSPNOEA [None]
